FAERS Safety Report 24045017 (Version 1)
Quarter: 2024Q3

REPORT INFORMATION
  Report Type: Spontaneous
  Country: TW (occurrence: TW)
  Receive Date: 20240703
  Receipt Date: 20240703
  Transmission Date: 20241016
  Serious: Yes (Other)
  Sender: AMGEN
  Company Number: TW-AMGEN-TWNSP2024127182

PATIENT
  Age: 53 Year
  Sex: Male

DRUGS (5)
  1. BEVACIZUMAB [Suspect]
     Active Substance: BEVACIZUMAB
     Indication: Glioblastoma
     Dosage: UNK
     Route: 065
     Dates: start: 20230413, end: 20230813
  2. TEMOZOLOMIDE [Concomitant]
     Active Substance: TEMOZOLOMIDE
     Indication: Anaplastic ganglioglioma
     Dosage: 75 MILLIGRAM/SQ. METER, QD
     Route: 065
     Dates: start: 202108
  3. TEMOZOLOMIDE [Concomitant]
     Active Substance: TEMOZOLOMIDE
     Dosage: 150 MILLIGRAM/SQ. METER, FIRST FIVE DAYS OF EACH MONTH
     Route: 065
     Dates: start: 202108, end: 202204
  4. TEMOZOLOMIDE [Concomitant]
     Active Substance: TEMOZOLOMIDE
     Dosage: 75 MILLIGRAM/SQ. METER, QD
     Route: 065
     Dates: start: 20221130
  5. CARMUSTINE [Concomitant]
     Active Substance: CARMUSTINE
     Dosage: 7.7 MILLIGRAM WAFERS

REACTIONS (5)
  - Glioblastoma [Unknown]
  - Haemorrhoidal haemorrhage [Unknown]
  - Sleep disorder [Unknown]
  - Decreased appetite [Unknown]
  - Hyperphosphataemia [Unknown]

NARRATIVE: CASE EVENT DATE: 20230721
